FAERS Safety Report 23955023 (Version 2)
Quarter: 2025Q2

REPORT INFORMATION
  Report Type: Report from Study
  Country: US (occurrence: US)
  Receive Date: 20240610
  Receipt Date: 20250429
  Transmission Date: 20250716
  Serious: No
  Sender: DR REDDYS
  Company Number: US-E2BLSMVVAL-CLI/USA/24/0008102

PATIENT
  Age: 12 Year
  Sex: Male
  Weight: 49.9 kg

DRUGS (2)
  1. JAVYGTOR [Suspect]
     Active Substance: SAPROPTERIN DIHYDROCHLORIDE
     Indication: Phenylketonuria
     Dosage: ONCE DAILY TEN 100 MG TABLET TOTAL DOSE 1100 MG
     Route: 048
  2. JAVYGTOR [Suspect]
     Active Substance: SAPROPTERIN DIHYDROCHLORIDE
     Dosage: ONCE DAILY ELEVEN 100 MG TABLET TOTAL DOSE 1100 MG
     Route: 048

REACTIONS (4)
  - Pharyngitis streptococcal [Unknown]
  - Seasonal allergy [Unknown]
  - Overdose [Unknown]
  - Product prescribing error [Unknown]
